FAERS Safety Report 8111167-6 (Version None)
Quarter: 2012Q1

REPORT INFORMATION
  Report Type: 
  Country: None (occurrence: None)
  Receive Date: 20120203
  Receipt Date: 20110526
  Transmission Date: 20120608
  Serious: No
  Sender: FDA-Public Use
  Company Number: US-GLAXOSMITHKLINE-A0929306A

PATIENT
  Age: 34 Year
  Sex: Female
  Weight: 65.9 kg

DRUGS (2)
  1. FOLIC ACID [Concomitant]
  2. LAMOTRIGINE [Suspect]
     Indication: BIPOLAR DISORDER
     Dosage: 150MG TWICE PER DAY
     Route: 048
     Dates: start: 20050101

REACTIONS (1)
  - MATERNAL EXPOSURE DURING PREGNANCY [None]
